FAERS Safety Report 4852098-4 (Version None)
Quarter: 2005Q4

REPORT INFORMATION
  Report Type: 
  Country: None (occurrence: None)
  Receive Date: 20051212
  Receipt Date: 20051212
  Transmission Date: 20060501
  Serious: Yes (Hospitalization, Disabling)
  Sender: FDA-Public Use
  Company Number: None

PATIENT
  Age: 62 Year
  Sex: Female
  Weight: 106 kg

DRUGS (8)
  1. CLINDAMYCIN [Suspect]
     Indication: ORAL INFECTION
     Dosage: PO
     Route: 048
     Dates: start: 20051103, end: 20051110
  2. PLAVIX [Concomitant]
  3. PROTONIX [Concomitant]
  4. METFORMIN [Concomitant]
  5. TIAC [Concomitant]
  6. NASACORT [Concomitant]
  7. VOLTAREN [Concomitant]
  8. NASACORT [Concomitant]

REACTIONS (6)
  - DERMATITIS [None]
  - DRUG HYPERSENSITIVITY [None]
  - HEPATIC FUNCTION ABNORMAL [None]
  - HYPERPYREXIA [None]
  - RENAL FAILURE ACUTE [None]
  - RHABDOMYOLYSIS [None]
